FAERS Safety Report 7145985-8 (Version None)
Quarter: 2010Q4

REPORT INFORMATION
  Report Type: 
  Country: None (occurrence: None)
  Receive Date: 20101124
  Receipt Date: 20101117
  Transmission Date: 20110411
  Serious: Yes (Hospitalization, Other)
  Sender: FDA-Public Use
  Company Number: 20109027

PATIENT
  Sex: Male

DRUGS (1)
  1. LIORESAL [Suspect]
     Indication: MUSCLE SPASTICITY
     Dosage: 275 MCG, DAILY, INTRATHECAL
     Route: 037

REACTIONS (8)
  - BACTERIAL TEST POSITIVE [None]
  - HYPERTONIA [None]
  - HYPOTENSION [None]
  - IMPLANT SITE DISCHARGE [None]
  - INFECTION [None]
  - MUSCULOSKELETAL STIFFNESS [None]
  - PURULENCE [None]
  - PYREXIA [None]
